FAERS Safety Report 4873200-4 (Version None)
Quarter: 2006Q1

REPORT INFORMATION
  Report Type: 
  Country: None (occurrence: None)
  Receive Date: 20060105
  Receipt Date: 20051230
  Transmission Date: 20060701
  Serious: Yes (Hospitalization)
  Sender: FDA-Public Use
  Company Number: PHRM2005FR03409

PATIENT
  Age: 84 Year
  Sex: Female

DRUGS (8)
  1. LEXOMIL [Concomitant]
     Route: 048
  2. EFFERALGAN [Concomitant]
  3. GINKOR FORT [Suspect]
     Route: 048
     Dates: end: 20051023
  4. MOPRAL [Suspect]
     Route: 048
     Dates: end: 20051023
  5. VASTAREL [Suspect]
     Route: 048
     Dates: end: 20051023
  6. LAMALINE [Suspect]
     Indication: ARTHRALGIA
     Route: 048
     Dates: end: 20051023
  7. ELISOR [Suspect]
     Indication: TYPE IIA HYPERLIPIDAEMIA
     Route: 048
     Dates: end: 20051023
  8. VOLTAREN [Suspect]
     Indication: ARTHRALGIA
     Dosage: 75 MG/DAY
     Route: 048
     Dates: end: 20051023

REACTIONS (4)
  - CEREBRAL ATROPHY [None]
  - CONFUSIONAL STATE [None]
  - DISORIENTATION [None]
  - HALLUCINATION [None]
